FAERS Safety Report 14151634 (Version 9)
Quarter: 2018Q2

REPORT INFORMATION
  Report Type: Spontaneous
  Country: US (occurrence: US)
  Receive Date: 20171102
  Receipt Date: 20180604
  Transmission Date: 20180711
  Serious: No
  Sender: FDA-Public Use
  Company Number: US-PFIZER INC-2017460754

PATIENT
  Age: 6 Year
  Sex: Male
  Weight: 34.2 kg

DRUGS (12)
  1. GENOTROPIN [Suspect]
     Active Substance: SOMATROPIN
     Indication: ADRENOGENITAL SYNDROME
     Dosage: 1 MG, DAILY (FOR 7 DAYS A WEEK)
  2. LETROZOLE. [Concomitant]
     Active Substance: LETROZOLE
     Indication: PRECOCIOUS PUBERTY
     Dosage: 2.5 MG, 1X/DAY
     Route: 048
  3. SOLU-CORTEF [Concomitant]
     Active Substance: HYDROCORTISONE SODIUM SUCCINATE
     Indication: MALAISE
     Dosage: 100 ML, AS NEEDED (IF HE CANNOT WITHSTAND THE ORAL DOSE)
  4. GENOTROPIN [Suspect]
     Active Substance: SOMATROPIN
     Indication: PRECOCIOUS PUBERTY
     Dosage: 1.0 MG ALTERNATING 1.2MG TO GET THE 1.1MG
     Dates: start: 201710
  5. HYDROCORTISONE. [Concomitant]
     Active Substance: HYDROCORTISONE
     Dosage: 15 MG, 3X/DAY (STRESS DOSE)
     Route: 048
  6. SUPPRELIN [Concomitant]
     Active Substance: HISTRELIN ACETATE
     Indication: PRECOCIOUS PUBERTY
     Dosage: GOOD FOR 12-14 MONTHS
     Dates: start: 201702
  7. FLUDROCORTISONE [Concomitant]
     Active Substance: FLUDROCORTISONE
     Indication: BLOOD ALDOSTERONE DECREASED
     Dosage: 0.1 MG, 1X/DAY
     Route: 048
  8. GENOTROPIN [Suspect]
     Active Substance: SOMATROPIN
     Dosage: 1.1 MG, 1X/DAY
     Dates: start: 201709
  9. HYDROCORTISONE. [Concomitant]
     Active Substance: HYDROCORTISONE
     Dosage: 50 MG, 3X/DAY (EVERY 8 HOURS)
     Route: 030
  10. GENOTROPIN [Suspect]
     Active Substance: SOMATROPIN
     Indication: GROWTH HORMONE DEFICIENCY
     Dosage: 1 MG, 1X/DAY (BY INJECTION)
     Dates: start: 20171016, end: 20171021
  11. HYDROCORTISONE. [Concomitant]
     Active Substance: HYDROCORTISONE
     Indication: CORTISOL DEFICIENCY
     Dosage: 5 MG, 3X/DAY
     Route: 048
  12. SOLU-CORTEF [Concomitant]
     Active Substance: HYDROCORTISONE SODIUM SUCCINATE
     Indication: INJURY

REACTIONS (7)
  - Incorrect dose administered [Unknown]
  - Injection site pain [Unknown]
  - Headache [Unknown]
  - Device issue [Unknown]
  - Drug dose omission [Unknown]
  - Drug prescribing error [Unknown]
  - Dizziness [Unknown]

NARRATIVE: CASE EVENT DATE: 201710
